FAERS Safety Report 13877589 (Version 2)
Quarter: 2017Q3

REPORT INFORMATION
  Report Type: Spontaneous
  Country: US (occurrence: US)
  Receive Date: 20170817
  Receipt Date: 20170824
  Transmission Date: 20171127
  Serious: Yes (Hospitalization, Other)
  Sender: FDA-Public Use
  Company Number: US-JNJFOC-20170815011

PATIENT
  Age: 54 Year
  Sex: Female

DRUGS (1)
  1. RIVAROXABAN [Suspect]
     Active Substance: RIVAROXABAN
     Indication: THROMBOSIS PROPHYLAXIS
     Route: 048

REACTIONS (4)
  - Atrial thrombosis [Recovering/Resolving]
  - Aortic thrombosis [Recovering/Resolving]
  - Pulmonary alveolar haemorrhage [Unknown]
  - Drug ineffective [Unknown]
